FAERS Safety Report 4727339-4 (Version None)
Quarter: 2005Q3

REPORT INFORMATION
  Report Type: 
  Country: None (occurrence: None)
  Receive Date: 20050727
  Receipt Date: 20050727
  Transmission Date: 20060218
  Serious: Yes (Hospitalization)
  Sender: FDA-Public Use
  Company Number: None

PATIENT
  Age: 61 Year
  Sex: Female
  Weight: 95.709 kg

DRUGS (8)
  1. LANSOPRAZOLE [Suspect]
     Dosage: 30 MG DAILY PO
     Route: 048
  2. PREVACID [Concomitant]
  3. PREMPHASE 14/14 [Concomitant]
  4. ASPIRIN [Concomitant]
  5. ZOCOR [Concomitant]
  6. AMBIEN [Concomitant]
  7. DULCOLAX [Concomitant]
  8. PEPCID [Concomitant]

REACTIONS (4)
  - ABDOMINAL PAIN [None]
  - DIARRHOEA [None]
  - DRUG INTOLERANCE [None]
  - NAUSEA [None]
